FAERS Safety Report 6126364-9 (Version None)
Quarter: 2009Q1

REPORT INFORMATION
  Report Type: 
  Country: None (occurrence: None)
  Receive Date: 20090320
  Receipt Date: 20090316
  Transmission Date: 20090719
  Serious: No
  Sender: FDA-Public Use
  Company Number: JP-EISAI MEDICAL RESEARCH-E2090-00689-SPO-JP

PATIENT
  Age: 24 Year
  Sex: Male

DRUGS (1)
  1. EXCEGRAN [Suspect]
     Indication: DRUG USE FOR UNKNOWN INDICATION
     Dosage: UNKNOWN
     Route: 048
     Dates: start: 20070901, end: 20071001

REACTIONS (1)
  - OCULOMUCOCUTANEOUS SYNDROME [None]
